FAERS Safety Report 11910845 (Version 2)
Quarter: 2016Q2

REPORT INFORMATION
  Report Type: Spontaneous
  Country: US (occurrence: US)
  Receive Date: 20160112
  Receipt Date: 20160504
  Transmission Date: 20160815
  Serious: No
  Sender: FDA-Public Use
  Company Number: US-ACTELION PHARMACEUTICALS US, INC.-A-US2016-129821

PATIENT
  Age: 56 Year
  Sex: Female

DRUGS (1)
  1. VELETRI [Suspect]
     Active Substance: EPOPROSTENOL
     Indication: PULMONARY ARTERIAL HYPERTENSION
     Dosage: 35.96 NG/KG, PER MIN
     Route: 042
     Dates: start: 20150109

REACTIONS (3)
  - Musculoskeletal pain [Unknown]
  - Cough [Unknown]
  - Neck pain [Unknown]
